FAERS Safety Report 22825369 (Version 2)
Quarter: 2024Q1

REPORT INFORMATION
  Report Type: Spontaneous
  Country: DE (occurrence: DE)
  Receive Date: 20230816
  Receipt Date: 20240319
  Transmission Date: 20240409
  Serious: Yes (Life-Threatening, Hospitalization, Other)
  Sender: FDA-Public Use
  Company Number: DE-DCGMA-23201600

PATIENT
  Age: 90 Year
  Sex: Male
  Weight: 80 kg

DRUGS (14)
  1. RIVASTIGMINE [Suspect]
     Active Substance: RIVASTIGMINE
     Indication: Dementia
     Dosage: 6 MILLIGRAM, ONCE A DAY
     Route: 065
     Dates: start: 2023
  2. ZOLPIDEM [Concomitant]
     Active Substance: ZOLPIDEM TARTRATE
     Indication: Product used for unknown indication
     Dosage: 10 MILLIGRAM (10 MG ZUR NACHT BEI SCHLAFST?RUNGENHAUSMEDIKATION VOR STATION?RER AUFNAHME.)
     Route: 065
  3. ZOLPIDEM [Concomitant]
     Active Substance: ZOLPIDEM TARTRATE
     Indication: Insomnia
  4. ZOLPIDEM [Concomitant]
     Active Substance: ZOLPIDEM TARTRATE
     Indication: Sleep disorder
  5. NALOXONE HYDROCHLORIDE\TILIDINE HYDROCHLORIDE [Concomitant]
     Active Substance: NALOXONE HYDROCHLORIDE\TILIDINE HYDROCHLORIDE
     Indication: Product used for unknown indication
     Dosage: UNK, PRN (50/4 MG (IF NECESSARY, HOME MEDICATION BEFORE ADMISSION TO THE HOSPITAL)
     Route: 065
  6. MIRTAZAPINE [Concomitant]
     Active Substance: MIRTAZAPINE
     Indication: Product used for unknown indication
     Dosage: 15 MILLIGRAM, ONCE A DAY (0-0-1-0HAUSMEDIKATION VOR STATION?RER AUFNAHME.)
     Route: 065
  7. METAMIZOLE [Concomitant]
     Active Substance: METAMIZOLE
     Indication: Product used for unknown indication
     Dosage: 500 MILLIGRAM, AS NECESSARY (500 MG BEI BEDARFHAUSMEDIKATION VOR STATION?RER AUFNAHME.)
     Route: 065
  8. ASPIRIN [Concomitant]
     Active Substance: ASPIRIN
     Indication: Product used for unknown indication
     Dosage: 100 MILLIGRAM, ONCE A DAY (HAUSMEDIKATION VOR STATION?RER AUFNAHME.)
     Route: 065
  9. CANDESARTAN [Concomitant]
     Active Substance: CANDESARTAN
     Indication: Product used for unknown indication
     Dosage: 1 - 0 - 0.5, (HOME MEDICATION BEFORE INPATIENT ADMISSION)
     Route: 065
  10. SIMVASTATIN [Concomitant]
     Active Substance: SIMVASTATIN
     Indication: Product used for unknown indication
     Dosage: 20 MILLIGRAM, ONCE A DAY (0-0-1-0HAUSMEDIKATION VOR STATION?RER AUFNAHME.)
     Route: 065
  11. FOLIC ACID [Concomitant]
     Active Substance: FOLIC ACID
     Indication: Product used for unknown indication
     Dosage: 5 MILLIGRAM, ONCE A DAY, (HOME MEDICATION BEFORE INPATIENT ADMISSION)
     Route: 065
  12. BRIMONIDINA [Concomitant]
     Indication: Product used for unknown indication
     Dosage: 1 DOSAGE FORM, TWO TIMES A DAY (2 MG / ML AUGENTROPFEN, 1 - 0 - 1HAUSMEDIKATION VOR STATION?RER AUFN
     Route: 065
  13. TORSEMIDE [Concomitant]
     Active Substance: TORSEMIDE
     Indication: Product used for unknown indication
     Dosage: 10 MILLIGRAM, ONCE A DAY (1-0-0-0HAUSMEDIKATION VOR STATION?RER AUFNAHME.)
     Route: 065
  14. INSULIN HUMAN [Concomitant]
     Active Substance: INSULIN HUMAN
     Indication: Product used for unknown indication
     Dosage: UNK, 26 - 0 - 24 - 0HAUSMEDIKATION VOR STATION?RER AUFNAHME.
     Route: 065

REACTIONS (5)
  - Atrioventricular block complete [Not Recovered/Not Resolved]
  - Fall [Not Recovered/Not Resolved]
  - Bradycardia [Not Recovered/Not Resolved]
  - Femur fracture [Not Recovered/Not Resolved]
  - Brain contusion [Not Recovered/Not Resolved]

NARRATIVE: CASE EVENT DATE: 20230718
